FAERS Safety Report 19768166 (Version 2)
Quarter: 2023Q4

REPORT INFORMATION
  Report Type: Report from Study
  Country: BR (occurrence: BR)
  Receive Date: 20210830
  Receipt Date: 20231220
  Transmission Date: 20240110
  Serious: Yes (Other)
  Sender: FDA-Public Use
  Company Number: BR-TAKEDA-BR202012610

PATIENT
  Sex: Male
  Weight: 73 kg

DRUGS (6)
  1. ANTI-INHIBITOR COAGULANT COMPLEX [Suspect]
     Active Substance: ANTI-INHIBITOR COAGULANT COMPLEX
     Indication: Factor VIII deficiency
     Dosage: 7000 INTERNATIONAL UNIT
     Route: 042
     Dates: start: 20200101
  2. ANTI-INHIBITOR COAGULANT COMPLEX [Suspect]
     Active Substance: ANTI-INHIBITOR COAGULANT COMPLEX
     Dosage: UNK
     Route: 042
  3. HEMO-8R [Suspect]
     Active Substance: ANTIHEMOPHILIC FACTOR, HUMAN RECOMBINANT
     Indication: Factor VIII deficiency
     Dosage: 3500 INTERNATIONAL UNIT, QOD
     Route: 042
     Dates: start: 20000101
  4. ANTIHEMOPHILIC FACTOR HUMAN [Suspect]
     Active Substance: ANTIHEMOPHILIC FACTOR HUMAN
     Indication: Product used for unknown indication
     Dosage: 3500 INTERNATIONAL UNIT
     Route: 065
  5. NOVOSEVEN [Concomitant]
     Active Substance: COAGULATION FACTOR VIIA RECOMBINANT HUMAN
     Dosage: UNK
     Route: 065
  6. BUPROPION HYDROCHLORIDE [Concomitant]
     Active Substance: BUPROPION HYDROCHLORIDE
     Indication: Antidepressant therapy
     Dosage: 1 DOSAGE FORM, QD
     Route: 065

REACTIONS (4)
  - Haemarthrosis [Recovered/Resolved]
  - Product supply issue [Unknown]
  - Inappropriate schedule of product administration [Not Recovered/Not Resolved]
  - Incorrect dose administered [Unknown]
